FAERS Safety Report 6838039-9 (Version None)
Quarter: 2010Q3

REPORT INFORMATION
  Report Type: 
  Country: None (occurrence: None)
  Receive Date: 20100713
  Receipt Date: 20070529
  Transmission Date: 20110219
  Serious: No
  Sender: FDA-Public Use
  Company Number: US-PFIZER INC-2007045658

PATIENT
  Sex: Female

DRUGS (7)
  1. CHANTIX [Suspect]
     Indication: SMOKING CESSATION THERAPY
     Route: 048
     Dates: start: 20070521
  2. PRILOSEC [Concomitant]
     Indication: GASTRIC DISORDER
  3. ATENOLOL [Concomitant]
     Indication: HEART RATE INCREASED
  4. XANAX [Concomitant]
     Indication: SLEEP DISORDER
  5. MONTELUKAST SODIUM [Concomitant]
     Indication: HYPERSENSITIVITY
  6. FLONASE [Concomitant]
  7. MIACALCIN [Concomitant]
     Indication: BONE DISORDER

REACTIONS (5)
  - ABDOMINAL PAIN UPPER [None]
  - DIARRHOEA [None]
  - NAUSEA [None]
  - SOMNOLENCE [None]
  - VOMITING [None]
